FAERS Safety Report 25373940 (Version 2)
Quarter: 2025Q4

REPORT INFORMATION
  Report Type: Spontaneous
  Country: GB (occurrence: GB)
  Receive Date: 20250529
  Receipt Date: 20251127
  Transmission Date: 20260118
  Serious: Yes (Hospitalization, Other)
  Sender: RANBAXY
  Company Number: GB-SUN PHARMACEUTICAL INDUSTRIES LTD-2025RR-506764

PATIENT
  Age: 58 Year
  Sex: Female

DRUGS (15)
  1. CARBAMAZEPINE [Suspect]
     Active Substance: CARBAMAZEPINE
     Indication: Mood altered
     Dosage: UNK
     Route: 065
  2. CARBAMAZEPINE [Suspect]
     Active Substance: CARBAMAZEPINE
     Dosage: 50 MILLIGRAM, BID (TITRATING REGIMEN CURRENTLY)
     Route: 048
  3. CLOZARIL [Suspect]
     Active Substance: CLOZAPINE
     Indication: Schizophrenia
     Dosage: UNK
     Route: 048
     Dates: start: 20080815, end: 20240510
  4. CLOZARIL [Suspect]
     Active Substance: CLOZAPINE
     Dosage: UNK (START DATE: 08-APR-2025)
     Route: 048
  5. CINNARIZINE [Suspect]
     Active Substance: CINNARIZINE
     Indication: Vertigo
     Dosage: 30 MILLIGRAM, TID (START DATE: 11-DEC-2024)
     Route: 048
  6. DOCUSATE [Suspect]
     Active Substance: DOCUSATE
     Indication: Product used for unknown indication
     Dosage: 200 MILLIGRAM, PM (START DATE: 17-APR-2025)
     Route: 048
  7. FOLIC ACID [Suspect]
     Active Substance: FOLIC ACID
     Indication: Product used for unknown indication
     Dosage: 5 MILLIGRAM, QD (START DATE: 01-MAR-2025)
     Route: 048
  8. LORAZEPAM [Suspect]
     Active Substance: LORAZEPAM
     Indication: Product used for unknown indication
     Dosage: 1 MILLIGRAM, TID (START DATE: 27-MAR-2025)
     Route: 065
  9. MOVICOL [Suspect]
     Active Substance: POLYETHYLENE GLYCOL 3350\POTASSIUM CHLORIDE\SODIUM BICARBONATE\SODIUM CHLORIDE
     Indication: Product used for unknown indication
     Dosage: 2 DOSAGE FORM, PRN (OD, START DATE: 11-DEC-2024)
     Route: 048
  10. PROCYCLIDINE [Suspect]
     Active Substance: PROCYCLIDINE
     Indication: Product used for unknown indication
     Dosage: 5 MILLIGRAM, PRN (TID, START DATE: 14-MAR-2025)
     Route: 048
  11. PROMETHAZINE [Suspect]
     Active Substance: PROMETHAZINE HYDROCHLORIDE
     Indication: Product used for unknown indication
     Dosage: UNK, PRN (25 TO 50 MG MAX, START DATE: 09-JAN-2025)
     Route: 048
  12. SENNA [Suspect]
     Active Substance: SENNOSIDES
     Indication: Product used for unknown indication
     Dosage: 15 MILLIGRAM, PM
     Route: 048
  13. ZOPICLONE [Suspect]
     Active Substance: ZOPICLONE
     Indication: Product used for unknown indication
     Dosage: 7.5 MILLIGRAM, PM (START DATE: 31-DEC-2024)
     Route: 048
  14. ZUCLOPENTHIXOL DECANOATE [Concomitant]
     Active Substance: ZUCLOPENTHIXOL DECANOATE
     Indication: Product used for unknown indication
     Dosage: 500 MILLIGRAM, QW (START DATE: 07-APR-2025), 1/WEEK
     Route: 030
  15. OLANZAPINE [Concomitant]
     Active Substance: OLANZAPINE
     Indication: Product used for unknown indication
     Dosage: 10 MILLIGRAM, PM
     Route: 048

REACTIONS (8)
  - Pneumonia [Unknown]
  - Neutropenia [Recovered/Resolved]
  - White blood cell count decreased [Recovered/Resolved]
  - Platelet count increased [Recovered/Resolved]
  - COVID-19 [Unknown]
  - Catatonia [Unknown]
  - Off label use [Unknown]
  - No adverse event [Recovered/Resolved]

NARRATIVE: CASE EVENT DATE: 20240528
